FAERS Safety Report 6136725-X (Version None)
Quarter: 2009Q1

REPORT INFORMATION
  Report Type: 
  Country: None (occurrence: None)
  Receive Date: 20090330
  Receipt Date: 20090326
  Transmission Date: 20090719
  Serious: Yes (Death, Other)
  Sender: FDA-Public Use
  Company Number: PHHY2009FR09134

PATIENT
  Age: 22 Year
  Sex: Male

DRUGS (5)
  1. NEORAL [Suspect]
     Indication: RENAL TRANSPLANT
     Dosage: 125 MG, BID
  2. NEORAL [Suspect]
     Dosage: 100 MG, BID
  3. CELLCEPT [Suspect]
     Indication: RENAL TRANSPLANT
     Dosage: 1750 MG/DAY
  4. PREDNISOLONE [Suspect]
     Indication: RENAL TRANSPLANT
     Dosage: 5 MG/DAY
  5. PREDNISOLONE [Suspect]
     Dosage: 25 MG/DAY

REACTIONS (14)
  - ANAEMIA [None]
  - CEREBELLAR ISCHAEMIA [None]
  - COMA [None]
  - DEPRESSED LEVEL OF CONSCIOUSNESS [None]
  - EXTRAPYRAMIDAL DISORDER [None]
  - GENERAL PHYSICAL HEALTH DETERIORATION [None]
  - HEPATITIS C [None]
  - HYPONATRAEMIA [None]
  - MENINGISM [None]
  - MUSCLE RIGIDITY [None]
  - OPSOCLONUS MYOCLONUS [None]
  - PYREXIA [None]
  - RESPIRATORY ARREST [None]
  - WEST NILE VIRAL INFECTION [None]
